FAERS Safety Report 18335418 (Version 1)
Quarter: 2020Q4

REPORT INFORMATION
  Report Type: Spontaneous
  Country: DE (occurrence: DE)
  Receive Date: 20201001
  Receipt Date: 20201001
  Transmission Date: 20210113
  Serious: Yes (Hospitalization, Other)
  Sender: FDA-Public Use
  Company Number: DE-TEVA-2020-DE-1832291

PATIENT
  Age: 69 Year
  Sex: Male

DRUGS (11)
  1. ZOPICLON [Concomitant]
     Active Substance: ZOPICLONE
     Dosage: 7.5 MILLIGRAM DAILY; 0-0-0-1
  2. RAMIPRIL. [Concomitant]
     Active Substance: RAMIPRIL
     Dosage: 10 MILLIGRAM DAILY; 1-0-0-0
  3. VOCADO 40MG/10MG [Concomitant]
     Dosage: 1 DOSAGE FORMS DAILY; 10|40 MG, 1-0-0-0
  4. METOHEXAL SUCC 190MG [Concomitant]
     Dosage: 190 MILLIGRAM DAILY; 1-0-0-0
  5. OMEPRAZOL [Concomitant]
     Active Substance: OMEPRAZOLE
     Dosage: 40 MILLIGRAM DAILY; 1-0-0-0
  6. SIMVASTATIN. [Concomitant]
     Active Substance: SIMVASTATIN
     Dosage: 12 DOSAGE FORMS DAILY; 20 MG, 0-0-12-0
  7. DICLOFENAC [Suspect]
     Active Substance: DICLOFENAC
     Dosage: 75 MG, 1X
     Route: 065
  8. ASS 100 [Suspect]
     Active Substance: ASPIRIN
     Dosage: 100 MILLIGRAM DAILY; 1-0-0-0
     Route: 065
  9. OXCARBAZEPIN [Concomitant]
     Active Substance: OXCARBAZEPINE
     Dosage: 450 MILLIGRAM DAILY; 1-1-1-0
  10. ALLOPURINOL. [Concomitant]
     Active Substance: ALLOPURINOL
     Dosage: .5 DOSAGE FORMS DAILY; 300 MG, 0.5-0-0-0
  11. MIRTAZAPIN [Concomitant]
     Active Substance: MIRTAZAPINE
     Dosage: 30 MILLIGRAM DAILY; 0-0-0-1

REACTIONS (2)
  - Haematochezia [Unknown]
  - Diverticulum intestinal haemorrhagic [Unknown]

NARRATIVE: CASE EVENT DATE: 20200804
